FAERS Safety Report 24763990 (Version 1)
Quarter: 2024Q4

REPORT INFORMATION
  Report Type: Spontaneous
  Country: AU (occurrence: AU)
  Receive Date: 20241223
  Receipt Date: 20241223
  Transmission Date: 20250114
  Serious: Yes (Life-Threatening, Other)
  Sender: SANDOZ
  Company Number: AU-MYLANLABS-2024M1102214

PATIENT
  Sex: Female

DRUGS (1)
  1. IBUPROFEN [Suspect]
     Active Substance: IBUPROFEN
     Indication: Product used for unknown indication
     Dosage: UNK
     Route: 064

REACTIONS (4)
  - Papillary muscle rupture [Recovering/Resolving]
  - Pulmonary hypertension [Recovering/Resolving]
  - Tricuspid valve incompetence [Recovering/Resolving]
  - Foetal exposure during pregnancy [Recovered/Resolved]
